FAERS Safety Report 10344699 (Version 1)
Quarter: 2014Q3

REPORT INFORMATION
  Report Type: Spontaneous
  Country: US (occurrence: None)
  Receive Date: 20140724
  Receipt Date: 20140724
  Transmission Date: 20150326
  Serious: No
  Sender: FDA-Public Use
  Company Number: None

PATIENT
  Age: 21 Year
  Sex: Female
  Weight: 51.26 kg

DRUGS (1)
  1. IMPLANON [Suspect]
     Active Substance: ETONOGESTREL

REACTIONS (8)
  - Activities of daily living impaired [None]
  - Impaired work ability [None]
  - Depression [None]
  - Thrombosis [None]
  - Foreign body [None]
  - Mood swings [None]
  - Anxiety [None]
  - Scar [None]

NARRATIVE: CASE EVENT DATE: 20140723
